FAERS Safety Report 16673442 (Version 6)
Quarter: 2021Q1

REPORT INFORMATION
  Report Type: Spontaneous
  Country: US (occurrence: US)
  Receive Date: 20190806
  Receipt Date: 20210303
  Transmission Date: 20210419
  Serious: Yes (Other)
  Sender: FDA-Public Use
  Company Number: US-PFIZER INC-2019336565

PATIENT
  Age: 93 Year
  Sex: Male

DRUGS (1)
  1. LYRICA [Suspect]
     Active Substance: PREGABALIN
     Dosage: 200 MG, 3X/DAY
     Route: 048

REACTIONS (4)
  - Deafness [Unknown]
  - Confusional state [Unknown]
  - Speech disorder [Unknown]
  - Bradyphrenia [Not Recovered/Not Resolved]
